FAERS Safety Report 15454643 (Version 1)
Quarter: 2018Q4

REPORT INFORMATION
  Report Type: Spontaneous
  Country: JP (occurrence: JP)
  Receive Date: 20181002
  Receipt Date: 20181002
  Transmission Date: 20190204
  Serious: Yes (Death)
  Sender: FDA-Public Use
  Company Number: PHHY2018JP113486

PATIENT
  Age: 64 Year
  Sex: Female

DRUGS (7)
  1. DAPTOMYCIN. [Suspect]
     Active Substance: DAPTOMYCIN
     Indication: PSOAS ABSCESS
  2. MEROPENEM. [Suspect]
     Active Substance: MEROPENEM
     Indication: SEPTIC SHOCK
     Dosage: 1 G, QD
     Route: 042
  3. ARBEKACIN [Suspect]
     Active Substance: ARBEKACIN
     Indication: ANTIBIOTIC PROPHYLAXIS
     Dosage: 175 MG, QD
     Route: 042
  4. VANCOMYCIN [Suspect]
     Active Substance: VANCOMYCIN
     Indication: SEPTIC SHOCK
     Dosage: 1 G, QD
     Route: 042
  5. VANCOMYCIN [Suspect]
     Active Substance: VANCOMYCIN
     Indication: PSOAS ABSCESS
     Dosage: 1.5 G, QD
     Route: 042
  6. DAPTOMYCIN. [Suspect]
     Active Substance: DAPTOMYCIN
     Indication: SEPTIC SHOCK
     Dosage: 400 MG, QD
     Route: 042
     Dates: start: 2012
  7. MEROPENEM. [Suspect]
     Active Substance: MEROPENEM
     Indication: PSOAS ABSCESS

REACTIONS (1)
  - Drug ineffective [Fatal]
